FAERS Safety Report 23777393 (Version 1)
Quarter: 2024Q2

REPORT INFORMATION
  Report Type: Spontaneous
  Country: IN (occurrence: IN)
  Receive Date: 20240424
  Receipt Date: 20240424
  Transmission Date: 20240716
  Serious: Yes (Hospitalization)
  Sender: FDA-Public Use
  Company Number: IN-VKT-000516

PATIENT
  Age: 40 Year
  Sex: Female

DRUGS (14)
  1. LEVETIRACETAM [Suspect]
     Active Substance: LEVETIRACETAM
     Indication: Seizure
     Route: 048
  2. LEVETIRACETAM [Suspect]
     Active Substance: LEVETIRACETAM
     Indication: Disease recurrence
     Route: 048
  3. RISPERIDONE [Concomitant]
     Active Substance: RISPERIDONE
     Indication: Seizure
     Route: 065
  4. RISPERIDONE [Concomitant]
     Active Substance: RISPERIDONE
     Indication: Disease recurrence
     Route: 065
  5. CLONAZEPAM [Concomitant]
     Active Substance: CLONAZEPAM
     Indication: Seizure
     Route: 065
  6. CLONAZEPAM [Concomitant]
     Active Substance: CLONAZEPAM
     Indication: Disease recurrence
     Route: 065
  7. LACOSAMIDE [Concomitant]
     Active Substance: LACOSAMIDE
     Indication: Seizure
     Route: 065
  8. LACOSAMIDE [Concomitant]
     Active Substance: LACOSAMIDE
     Indication: Disease recurrence
     Route: 065
  9. VALPROATE [Concomitant]
     Active Substance: VALPROIC ACID
     Indication: Seizure
     Route: 065
  10. VALPROATE [Concomitant]
     Active Substance: VALPROIC ACID
     Indication: Disease recurrence
     Route: 065
  11. LEVETIRACETAM [Suspect]
     Active Substance: LEVETIRACETAM
     Indication: Seizure
     Route: 048
  12. LEVETIRACETAM [Suspect]
     Active Substance: LEVETIRACETAM
     Indication: Disease recurrence
     Route: 048
  13. PHENOBARBITAL [Concomitant]
     Active Substance: PHENOBARBITAL
     Indication: Seizure
     Route: 065
  14. PHENOBARBITAL [Concomitant]
     Active Substance: PHENOBARBITAL
     Indication: Disease recurrence
     Route: 065

REACTIONS (8)
  - Seizure [Recovered/Resolved]
  - Crying [Recovered/Resolved]
  - Logorrhoea [Recovered/Resolved]
  - Screaming [Recovered/Resolved]
  - Speech disorder [Recovered/Resolved]
  - Insomnia [Recovered/Resolved]
  - Aggression [Recovered/Resolved]
  - Irritability [Recovered/Resolved]
